FAERS Safety Report 6646605-9 (Version None)
Quarter: 2010Q1

REPORT INFORMATION
  Report Type: 
  Country: None (occurrence: None)
  Receive Date: 20100322
  Receipt Date: 20100322
  Transmission Date: 20100710
  Serious: Yes (Hospitalization)
  Sender: FDA-Public Use
  Company Number: None

PATIENT
  Age: 86 Year
  Sex: Female
  Weight: 62.1 kg

DRUGS (2)
  1. DOXORUBICIN HCL [Suspect]
     Indication: NON-HODGKIN'S LYMPHOMA
     Dosage: 84 IV DAY 1
     Route: 042
     Dates: start: 20100308
  2. VINCRISTINE [Suspect]
     Indication: NON-HODGKIN'S LYMPHOMA
     Dosage: 2 MG IV DAY 1
     Route: 042
     Dates: start: 20100308

REACTIONS (2)
  - INFECTION [None]
  - NEUTROPHIL COUNT ABNORMAL [None]
